FAERS Safety Report 23262658 (Version 5)
Quarter: 2024Q1

REPORT INFORMATION
  Report Type: Spontaneous
  Country: JP (occurrence: JP)
  Receive Date: 20231205
  Receipt Date: 20240116
  Transmission Date: 20240410
  Serious: Yes (Death, Other)
  Sender: FDA-Public Use
  Company Number: JP-MSD-2310JPN003373J

PATIENT
  Sex: Female

DRUGS (1)
  1. CUBICIN [Suspect]
     Active Substance: DAPTOMYCIN
     Indication: Enterococcal infection
     Dosage: UNK
     Route: 041
     Dates: start: 20220422, end: 20220506

REACTIONS (4)
  - Condition aggravated [Fatal]
  - Eosinophilic pneumonia [Fatal]
  - Drug resistance [Fatal]
  - Off label use [Unknown]

NARRATIVE: CASE EVENT DATE: 20220101
